FAERS Safety Report 4900087-3 (Version None)
Quarter: 2006Q1

REPORT INFORMATION
  Report Type: 
  Country: None (occurrence: None)
  Receive Date: 20060131
  Receipt Date: 20060118
  Transmission Date: 20060701
  Serious: Yes (Other)
  Sender: FDA-Public Use
  Company Number: 2006009754

PATIENT
  Sex: Female

DRUGS (1)
  1. DEPO-ESTRADIOL [Suspect]
     Indication: HORMONE REPLACEMENT THERAPY
     Dosage: INTRAMUSCULAR
     Route: 030
     Dates: end: 20050101

REACTIONS (2)
  - ABSCESS [None]
  - INFLAMMATION [None]
